FAERS Safety Report 9563742 (Version 1)
Quarter: 2013Q3

REPORT INFORMATION
  Report Type: Spontaneous
  Country: CM (occurrence: None)
  Receive Date: 20130926
  Receipt Date: 20130926
  Transmission Date: 20140515
  Serious: Yes (Death, Hospitalization)
  Sender: FDA-Public Use
  Company Number: 2013P1019422

PATIENT
  Age: 70 Year
  Sex: Male

DRUGS (2)
  1. ALBENDAZOLE [Suspect]
     Dosage: 1 TABLET; PO
     Route: 048
     Dates: start: 20130719
  2. MECTIZAN (IVERMECTIN) [Suspect]
     Indication: FILARIASIS LYMPHATIC
     Route: 048
     Dates: start: 20130719

REACTIONS (8)
  - Pyrexia [None]
  - Aphasia [None]
  - Palpitations [None]
  - Diarrhoea [None]
  - Asthenia [None]
  - Abnormal behaviour [None]
  - Encephalopathy [None]
  - Anaemia [None]
